FAERS Safety Report 5753681-4 (Version None)
Quarter: 2008Q2

REPORT INFORMATION
  Report Type: 
  Country: None (occurrence: None)
  Receive Date: 20080530
  Receipt Date: 20080520
  Transmission Date: 20081010
  Serious: Yes (Hospitalization)
  Sender: FDA-Public Use
  Company Number: US-JNJFOC-20071206226

PATIENT
  Sex: Male
  Weight: 83.01 kg

DRUGS (18)
  1. TMC125 [Suspect]
     Route: 048
  2. TMC125 [Suspect]
     Indication: HIV INFECTION
     Route: 048
  3. PREZISTA [Concomitant]
     Indication: HIV INFECTION
     Dosage: PERMANENT STOP
     Route: 048
  4. MK-0518 [Concomitant]
     Indication: HIV INFECTION
     Dosage: PERMANENT STOP
     Route: 048
  5. NORVIR [Concomitant]
     Indication: HIV INFECTION
     Route: 048
  6. TRIZIVIR [Concomitant]
     Indication: HIV INFECTION
     Route: 048
  7. MEPRON [Concomitant]
     Dosage: 750MG/5ML SUSPENSION
     Route: 048
  8. NORVASC [Concomitant]
     Route: 048
  9. LOMOTIL [Concomitant]
     Indication: DIARRHOEA
     Dosage: 2.5-0.025MG, 1-2 DOSES DAILY, TAKEN AS REQUIRED
     Route: 048
  10. ALPRAZOLAM [Concomitant]
     Indication: ANXIETY
     Dosage: EVERY 8 HOURS, TAKEN AS REQUIRED
     Route: 048
  11. IBUROFEN [Concomitant]
     Indication: BACK PAIN
     Dosage: THREE TIMES DAILY, TAKEN AS REQUIRED
     Route: 048
  12. ALDARA [Concomitant]
     Route: 065
  13. OCCLUSAL [Concomitant]
     Indication: SKIN PAPILLOMA
     Route: 065
  14. TEMOVATE [Concomitant]
     Route: 065
  15. ALBUTEROL [Concomitant]
     Indication: WHEEZING
     Route: 065
  16. ALBUTEROL [Concomitant]
     Indication: COUGH
     Dosage: EVERY 4-6 HOURS, TAKEN AS REQUIRED
     Route: 065
  17. AMBIEN [Concomitant]
     Indication: SLEEP DISORDER
     Dosage: ONCE EVERY HOUR, TAKEN AS REQUIRED
     Route: 048
  18. WELLBUTRIN [Concomitant]
     Route: 048

REACTIONS (1)
  - ACUTE MEGAKARYOCYTIC LEUKAEMIA [None]
